FAERS Safety Report 7133022-0 (Version None)
Quarter: 2010Q4

REPORT INFORMATION
  Report Type: 
  Country: None (occurrence: None)
  Receive Date: 20101202
  Receipt Date: 20101130
  Transmission Date: 20110411
  Serious: Yes (Death, Hospitalization)
  Sender: FDA-Public Use
  Company Number: A0873756A

PATIENT
  Age: 53 Year
  Sex: Female

DRUGS (6)
  1. PROMACTA [Suspect]
     Dosage: 50MG PER DAY
     Route: 048
     Dates: start: 20100528
  2. FLOLAN [Suspect]
  3. VITAMIN B-12 [Concomitant]
  4. NITROGLYCERIN [Concomitant]
  5. PREDNISONE [Concomitant]
  6. UNKNOWN [Concomitant]

REACTIONS (4)
  - CARDIAC ARREST [None]
  - HEPATIC ENCEPHALOPATHY [None]
  - PORTOPULMONARY HYPERTENSION [None]
  - PULMONARY HYPERTENSION [None]
